FAERS Safety Report 6116608-1 (Version None)
Quarter: 2009Q1

REPORT INFORMATION
  Report Type: 
  Country: None (occurrence: None)
  Receive Date: 20090314
  Receipt Date: 20081216
  Transmission Date: 20090719
  Serious: No
  Sender: FDA-Public Use
  Company Number: US-ABBOTT-08P-163-0493469-00

PATIENT
  Sex: Male
  Weight: 79.45 kg

DRUGS (5)
  1. HUMIRA [Suspect]
     Indication: POLYMYOSITIS
     Route: 058
     Dates: start: 20081009
  2. PREDNISONE [Concomitant]
     Indication: POLYMYOSITIS
     Dosage: START DOSE WAS 70MG QD WITH GRADUAL TAPER.
     Route: 048
     Dates: start: 20070701
  3. ROXICET [Concomitant]
     Indication: PAIN
     Dosage: 325MG/5MG
     Route: 048
  4. PREVACID [Concomitant]
     Indication: GASTRIC DISORDER
     Route: 048
  5. ASPIRIN [Concomitant]
     Indication: DRUG USE FOR UNKNOWN INDICATION
     Route: 048

REACTIONS (5)
  - ASTHENIA [None]
  - CHEST DISCOMFORT [None]
  - DIZZINESS [None]
  - MUSCLE SPASMS [None]
  - NASOPHARYNGITIS [None]
